FAERS Safety Report 7631301-1 (Version None)
Quarter: 2011Q3

REPORT INFORMATION
  Report Type: 
  Country: None (occurrence: None)
  Receive Date: 20110725
  Receipt Date: 20110718
  Transmission Date: 20111222
  Serious: Yes (Other)
  Sender: FDA-Public Use
  Company Number: FR-AMGEN-FRASP2011033391

PATIENT
  Age: 64 Year
  Sex: Female

DRUGS (3)
  1. CARBOPLATIN [Concomitant]
     Dosage: 460 MG, UNK
     Route: 042
     Dates: start: 20110406, end: 20110603
  2. NEULASTA [Suspect]
     Indication: CHEMOTHERAPY
     Dosage: 6 MG, PER CHEMO REGIM
     Route: 058
     Dates: start: 20110422, end: 20110606
  3. DOCETAXEL [Concomitant]
     Dosage: 120 MG, UNK
     Route: 042
     Dates: start: 20110406, end: 20110603

REACTIONS (4)
  - NEUTROPHIL COUNT DECREASED [None]
  - THROMBOCYTOPENIA [None]
  - LEUKOPENIA [None]
  - BONE PAIN [None]
